FAERS Safety Report 8593040-2 (Version None)
Quarter: 2012Q3

REPORT INFORMATION
  Report Type: 
  Country: None (occurrence: None)
  Receive Date: 20120814
  Receipt Date: 20120810
  Transmission Date: 20120928
  Serious: Yes (Hospitalization)
  Sender: FDA-Public Use
  Company Number: US-GLAXOSMITHKLINE-A0964102A

PATIENT
  Age: 38 Year
  Sex: Female

DRUGS (7)
  1. TRACLEER [Concomitant]
  2. COLACE [Concomitant]
  3. REGLAN [Concomitant]
  4. FLOLAN [Suspect]
     Indication: PULMONARY ARTERIAL HYPERTENSION
     Dosage: 53NGKM SEE DOSAGE TEXT
     Route: 042
     Dates: start: 20061027
  5. DIGOXIN [Concomitant]
  6. MORPHINE [Concomitant]
  7. METOPROLOL [Concomitant]

REACTIONS (2)
  - INTESTINAL OBSTRUCTION [None]
  - CHEST PAIN [None]
